FAERS Safety Report 18947349 (Version 3)
Quarter: 2021Q1

REPORT INFORMATION
  Report Type: Spontaneous
  Country: US (occurrence: US)
  Receive Date: 20210226
  Receipt Date: 20210326
  Transmission Date: 20210420
  Serious: Yes (Other)
  Sender: FDA-Public Use
  Company Number: US-ORGANON-2102USA007196

PATIENT
  Age: 30 Year
  Sex: Female

DRUGS (1)
  1. NEXPLANON [Suspect]
     Active Substance: ETONOGESTREL
     Indication: CONTRACEPTION
     Dosage: 1 IMPLANT (68 MG); LEFT UPPER ARM
     Dates: start: 20201027, end: 20210216

REACTIONS (7)
  - Feeling abnormal [Unknown]
  - Medical device site discomfort [Recovered/Resolved]
  - Complication of device removal [Recovered/Resolved]
  - Device breakage [Recovered/Resolved]
  - Implant site pain [Unknown]
  - Device kink [Recovered/Resolved]
  - Incorrect route of product administration [Unknown]

NARRATIVE: CASE EVENT DATE: 20201027
